FAERS Safety Report 23171626 (Version 3)
Quarter: 2023Q4

REPORT INFORMATION
  Report Type: Spontaneous
  Country: US (occurrence: US)
  Receive Date: 20231110
  Receipt Date: 20231228
  Transmission Date: 20240110
  Serious: Yes (Other)
  Sender: FDA-Public Use
  Company Number: US-AstraZeneca-CH-00500859A

PATIENT
  Age: 72 Year
  Sex: Female
  Weight: 80.726 kg

DRUGS (2)
  1. SOLIRIS [Suspect]
     Active Substance: ECULIZUMAB
     Indication: Myasthenia gravis
     Dosage: UNK, Q2W
     Route: 065
     Dates: start: 201811
  2. SOLIRIS [Suspect]
     Active Substance: ECULIZUMAB
     Indication: Neuromyelitis optica spectrum disorder

REACTIONS (5)
  - Femur fracture [Recovered/Resolved]
  - Fall [Recovering/Resolving]
  - Head injury [Unknown]
  - Drug ineffective [Unknown]
  - Asthenia [Recovering/Resolving]

NARRATIVE: CASE EVENT DATE: 20230826
